FAERS Safety Report 9012023 (Version 2)
Quarter: 2013Q1

REPORT INFORMATION
  Report Type: Report from Study
  Country: BR (occurrence: BR)
  Receive Date: 20130114
  Receipt Date: 20130125
  Transmission Date: 20140127
  Serious: Yes (Hospitalization, Other)
  Sender: FDA-Public Use
  Company Number: BR-ROCHE-1008451

PATIENT
  Sex: Female
  Weight: 62 kg

DRUGS (6)
  1. MABTHERA [Suspect]
     Indication: PRODUCT USED FOR UNKNOWN INDICATION
     Dosage: LAST INFUSION: 13/JUL/2012.
     Route: 065
     Dates: start: 20101001, end: 201105
  2. METICORTEN [Concomitant]
     Route: 065
  3. MODURETIC [Concomitant]
     Route: 065
  4. SYNTHROID [Concomitant]
     Route: 065
  5. ALGINAC [Concomitant]
     Route: 065
  6. PRATIPRAZOL [Concomitant]
     Route: 065

REACTIONS (9)
  - Lower limb fracture [Recovered/Resolved]
  - Joint swelling [Recovered/Resolved]
  - Osteoporosis [Unknown]
  - Osteopenia [Unknown]
  - Intervertebral disc protrusion [Unknown]
  - Exostosis [Unknown]
  - Arthropathy [Unknown]
  - Arthralgia [Recovered/Resolved]
  - Pain in extremity [Recovered/Resolved]
